FAERS Safety Report 6489880-6 (Version None)
Quarter: 2009Q4

REPORT INFORMATION
  Report Type: 
  Country: None (occurrence: None)
  Receive Date: 20091211
  Receipt Date: 20091203
  Transmission Date: 20100525
  Serious: Yes (Other)
  Sender: FDA-Public Use
  Company Number: CA-JNJFOC-20091201175

PATIENT
  Sex: Female
  Weight: 40 kg

DRUGS (3)
  1. DURAGESIC-100 [Suspect]
     Indication: PAIN
     Dosage: START DATE: JAN 2009 OR BEFORE
     Route: 062
  2. HYDROMORPHONE HCL [Concomitant]
     Route: 058
  3. MIDAZOLAM HCL [Concomitant]
     Route: 058

REACTIONS (3)
  - BREAKTHROUGH PAIN [None]
  - DRUG INEFFECTIVE [None]
  - MUSCLE ATROPHY [None]
